FAERS Safety Report 7380721-1 (Version None)
Quarter: 2011Q1

REPORT INFORMATION
  Report Type: 
  Country: None (occurrence: None)
  Receive Date: 20110321
  Receipt Date: 20110314
  Transmission Date: 20110831
  Serious: Yes (Disabling, Other)
  Sender: FDA-Public Use
  Company Number: 2011MA002406

PATIENT
  Sex: Male

DRUGS (1)
  1. METOCLOPRAMIDE TABLETS USP, 10 MG (PUREPAC) [Suspect]
     Dates: start: 20010101, end: 20090101

REACTIONS (12)
  - TARDIVE DYSKINESIA [None]
  - ACTIVITIES OF DAILY LIVING IMPAIRED [None]
  - MENTAL DISORDER [None]
  - INCORRECT DRUG ADMINISTRATION DURATION [None]
  - MULTIPLE INJURIES [None]
  - CONDITION AGGRAVATED [None]
  - PRE-EXISTING DISEASE [None]
  - EXTRAPYRAMIDAL DISORDER [None]
  - ECONOMIC PROBLEM [None]
  - PARKINSON'S DISEASE [None]
  - ANXIETY [None]
  - EMOTIONAL DISTRESS [None]
